FAERS Safety Report 14806867 (Version 2)
Quarter: 2018Q2

REPORT INFORMATION
  Report Type: Spontaneous
  Country: US (occurrence: US)
  Receive Date: 20180425
  Receipt Date: 20180514
  Transmission Date: 20180711
  Serious: Yes (Other)
  Sender: FDA-Public Use
  Company Number: US-ROCHE-2072741

PATIENT
  Age: 47 Year
  Sex: Female

DRUGS (16)
  1. ALPRAZOLAM. [Concomitant]
     Active Substance: ALPRAZOLAM
     Route: 048
     Dates: start: 20130508
  2. NORCO [Concomitant]
     Active Substance: ACETAMINOPHEN\HYDROCODONE BITARTRATE
     Dosage: 5-325 MG, EVRY 4-6 HOURS
     Route: 048
     Dates: start: 20151221
  3. PREMARIN [Concomitant]
     Active Substance: ESTROGENS, CONJUGATED
     Route: 048
     Dates: start: 20130508
  4. MECLIZINE HCL [Concomitant]
     Active Substance: MECLIZINE HYDROCHLORIDE
     Indication: VERTIGO
     Route: 048
     Dates: start: 20160120
  5. PROVIGIL [Concomitant]
     Active Substance: MODAFINIL
     Dosage: QAM
     Route: 048
     Dates: start: 20161007
  6. BACLOFEN. [Concomitant]
     Active Substance: BACLOFEN
     Route: 048
     Dates: start: 20170414
  7. SOLU-MEDROL [Concomitant]
     Active Substance: METHYLPREDNISOLONE SODIUM SUCCINATE
     Route: 065
  8. TYLENOL [Concomitant]
     Active Substance: ACETAMINOPHEN
     Indication: PREMEDICATION
     Route: 048
  9. OCREVUS [Suspect]
     Active Substance: OCRELIZUMAB
     Indication: MULTIPLE SCLEROSIS
     Dosage: ONGOING: UNKNOWN
     Route: 042
     Dates: start: 20170912
  10. LYRICA [Concomitant]
     Active Substance: PREGABALIN
     Route: 048
     Dates: start: 20130508
  11. VENLAFAXINE HCL [Concomitant]
     Active Substance: VENLAFAXINE HYDROCHLORIDE
     Route: 048
     Dates: start: 20130508
  12. KEPPRA [Concomitant]
     Active Substance: LEVETIRACETAM
     Route: 048
     Dates: start: 20141211
  13. ADDERALL [Concomitant]
     Active Substance: AMPHETAMINE ASPARTATE\AMPHETAMINE SULFATE\DEXTROAMPHETAMINE SACCHARATE\DEXTROAMPHETAMINE SULFATE
     Indication: FATIGUE
     Route: 048
     Dates: start: 20170104
  14. OCREVUS [Suspect]
     Active Substance: OCRELIZUMAB
     Route: 042
     Dates: start: 20170927, end: 20171221
  15. SYNTHROID [Concomitant]
     Active Substance: LEVOTHYROXINE SODIUM
     Route: 048
     Dates: start: 20141211
  16. FLEXERIL [Concomitant]
     Active Substance: CYCLOBENZAPRINE HYDROCHLORIDE
     Indication: MUSCLE SPASMS
     Route: 048
     Dates: start: 20170104

REACTIONS (28)
  - Sinus congestion [Unknown]
  - Ataxia [Unknown]
  - Pneumonia [Recovered/Resolved]
  - Mucosal exfoliation [Recovered/Resolved]
  - Partial seizures with secondary generalisation [Unknown]
  - Pruritus [Unknown]
  - Infection [Unknown]
  - Upper respiratory tract congestion [Unknown]
  - Constipation [Unknown]
  - Pain [Unknown]
  - Chest pain [Unknown]
  - Oral mucosal exfoliation [Recovered/Resolved]
  - Oropharyngeal pain [Unknown]
  - Chest discomfort [Unknown]
  - Migraine [Unknown]
  - Syncope [Unknown]
  - Urinary incontinence [Unknown]
  - Increased tendency to bruise [Unknown]
  - Pleurisy [Recovered/Resolved]
  - Mucous membrane disorder [Recovered/Resolved]
  - Weight increased [Unknown]
  - Neuralgia [Unknown]
  - Peripheral swelling [Unknown]
  - Wheezing [Unknown]
  - Stevens-Johnson syndrome [Recovered/Resolved]
  - Headache [Unknown]
  - Pain in extremity [Unknown]
  - Sinusitis [Unknown]

NARRATIVE: CASE EVENT DATE: 201710
